FAERS Safety Report 12113722 (Version 2)
Quarter: 2016Q1

REPORT INFORMATION
  Report Type: Spontaneous
  Country: NG (occurrence: NG)
  Receive Date: 20160225
  Receipt Date: 20160304
  Transmission Date: 20160526
  Serious: Yes (Other)
  Sender: FDA-Public Use
  Company Number: NG-ROCHE-1715652

PATIENT
  Sex: Male

DRUGS (1)
  1. PEGASYS [Suspect]
     Active Substance: PEGINTERFERON ALFA-2A
     Indication: HEPATITIS
     Dosage: 180MCG PER 0.5ML PER WEEK
     Route: 058

REACTIONS (2)
  - Treatment failure [Unknown]
  - Viral load increased [Not Recovered/Not Resolved]
